FAERS Safety Report 7500590-6 (Version None)
Quarter: 2011Q2

REPORT INFORMATION
  Report Type: 
  Country: None (occurrence: None)
  Receive Date: 20110524
  Receipt Date: 20100514
  Transmission Date: 20111010
  Serious: No
  Sender: FDA-Public Use
  Company Number: US-NOVEN-ALL1-2010-02832

PATIENT

DRUGS (3)
  1. ALBUTEROL SULFATE [Concomitant]
     Dosage: UNK, AS REQ'D
     Route: 055
  2. DAYTRANA [Suspect]
     Dosage: 15 MG, AS REQ'D
     Route: 062
  3. QVAR 40 [Concomitant]
     Dosage: UNK, 1X/DAY:QD
     Route: 055

REACTIONS (3)
  - NO ADVERSE EVENT [None]
  - EXPIRED DRUG ADMINISTERED [None]
  - OFF LABEL USE [None]
